FAERS Safety Report 10205971 (Version 2)
Quarter: 2014Q3

REPORT INFORMATION
  Report Type: Spontaneous
  Country: US (occurrence: None)
  Receive Date: 20140527
  Receipt Date: 20140716
  Transmission Date: 20150326
  Serious: Yes (Hospitalization)
  Sender: FDA-Public Use
  Company Number: UTC-048468

PATIENT
  Age: 74 Year
  Sex: Female
  Weight: 59 kg

DRUGS (5)
  1. LETAIRISN (AMBRISENTAN) [Concomitant]
  2. REMODULIN [Suspect]
     Active Substance: TREPROSTINIL
     Route: 058
     Dates: start: 20071130
  3. WARFARIN [Suspect]
     Active Substance: WARFARIN
     Indication: PRODUCT USED FOR UNKNOWN INDICATION
  4. REMODULIN [Suspect]
     Active Substance: TREPROSTINIL
     Indication: PULMONARY ARTERIAL HYPERTENSION
     Route: 058
     Dates: start: 20071130
  5. ADCIRCA [Concomitant]
     Active Substance: TADALAFIL

REACTIONS (2)
  - Anaemia [None]
  - Intestinal haemorrhage [None]

NARRATIVE: CASE EVENT DATE: 20140418
